FAERS Safety Report 19819707 (Version 1)
Quarter: 2021Q3

REPORT INFORMATION
  Report Type: Other
  Country: US (occurrence: US)
  Receive Date: 20210913
  Receipt Date: 20210913
  Transmission Date: 20211014
  Serious: No
  Sender: FDA-Public Use
  Company Number: US-LUOXIN AUROVITAS PHARMA(CHENGDU) CO.,LTD.-2118288

PATIENT
  Age: 73 Year
  Sex: Male

DRUGS (5)
  1. HEPARIN [Concomitant]
     Active Substance: HEPARIN SODIUM
  2. DEXAMETHASONE. [Suspect]
     Active Substance: DEXAMETHASONE
  3. CEFTRIAXONE. [Suspect]
     Active Substance: CEFTRIAXONE
  4. IPRATROPIUM BROMIDE AND ALBUTEROL SULFATE [Suspect]
     Active Substance: ALBUTEROL SULFATE\IPRATROPIUM BROMIDE
     Indication: COVID-19
  5. AZITHROMYCIN ANHYDROUS. [Suspect]
     Active Substance: AZITHROMYCIN ANHYDROUS

REACTIONS (1)
  - Off label use [Unknown]
